FAERS Safety Report 13098521 (Version 1)
Quarter: 2017Q1

REPORT INFORMATION
  Report Type: Spontaneous
  Country: US (occurrence: US)
  Receive Date: 20170109
  Receipt Date: 20170109
  Transmission Date: 20170428
  Serious: No
  Sender: FDA-Public Use
  Company Number: US-GRANULES INDIA LIMITED-1061817

PATIENT
  Age: 61 Year
  Sex: Male

DRUGS (9)
  1. METFORMIN HYDROCHLORIDE. [Suspect]
     Active Substance: METFORMIN HYDROCHLORIDE
  2. CRESTOR [Concomitant]
     Active Substance: ROSUVASTATIN CALCIUM
  3. COREG [Concomitant]
     Active Substance: CARVEDILOL
  4. ALLOPURINOL. [Concomitant]
     Active Substance: ALLOPURINOL
  5. BABY ASPIRIN [Concomitant]
     Active Substance: ASPIRIN
  6. IRBESARTAN. [Concomitant]
     Active Substance: IRBESARTAN
  7. TRAVATAN [Concomitant]
     Active Substance: TRAVOPROST
  8. EFFIENT [Concomitant]
     Active Substance: PRASUGREL HYDROCHLORIDE
  9. SPIRONOLACTONE. [Concomitant]
     Active Substance: SPIRONOLACTONE

REACTIONS (3)
  - Vision blurred [Unknown]
  - Drug ineffective [Unknown]
  - Blood glucose increased [Unknown]
